FAERS Safety Report 6226383-8 (Version None)
Quarter: 2009Q2

REPORT INFORMATION
  Report Type: 
  Country: None (occurrence: None)
  Receive Date: 20090612
  Receipt Date: 20090514
  Transmission Date: 20091009
  Serious: No
  Sender: FDA-Public Use
  Company Number: US-ABBOTT-09P-163-0573581-00

PATIENT
  Sex: Female
  Weight: 86.26 kg

DRUGS (16)
  1. HUMIRA [Suspect]
     Indication: RHEUMATOID ARTHRITIS
     Route: 058
     Dates: start: 20090320
  2. HYDROXYCHLOROQUINE SULFATE [Concomitant]
     Indication: RHEUMATOID ARTHRITIS
     Route: 048
  3. DICLOFENAC SODIUM [Concomitant]
     Indication: RHEUMATOID ARTHRITIS
     Route: 048
  4. PREDNISONE [Concomitant]
     Indication: RHEUMATOID ARTHRITIS
     Route: 048
  5. ULTRAM ER [Concomitant]
     Indication: RHEUMATOID ARTHRITIS
     Route: 048
  6. CYMBALTA [Concomitant]
     Indication: FIBROMYALGIA
     Route: 048
  7. PREMARIN [Concomitant]
     Indication: HORMONE REPLACEMENT THERAPY
     Route: 048
  8. LUNESTA [Concomitant]
     Indication: INSOMNIA
     Route: 048
  9. TRAZODONE HCL [Concomitant]
     Indication: INSOMNIA
     Route: 048
  10. BONIVA [Concomitant]
     Indication: OSTEOPOROSIS
     Route: 048
  11. TYLENOL W/ CODEINE NO. 3 [Concomitant]
     Indication: PAIN
     Route: 048
  12. DICLOFENAC SODIUM [Concomitant]
     Indication: PAIN
     Route: 061
  13. VITAMIN D [Concomitant]
     Indication: VITAMIN SUPPLEMENTATION
     Route: 048
  14. VITAMIN B COMPLEX CAP [Concomitant]
     Indication: VITAMIN SUPPLEMENTATION
     Route: 048
  15. CALCIUM [Concomitant]
     Indication: MINERAL SUPPLEMENTATION
     Route: 048
  16. MULTI-VITAMIN [Concomitant]
     Indication: VITAMIN SUPPLEMENTATION
     Route: 048

REACTIONS (5)
  - ASTHENIA [None]
  - DIZZINESS [None]
  - FATIGUE [None]
  - PAIN [None]
  - TREMOR [None]
